FAERS Safety Report 8235652-1 (Version None)
Quarter: 2012Q1

REPORT INFORMATION
  Report Type: 
  Country: None (occurrence: None)
  Receive Date: 20120326
  Receipt Date: 20120321
  Transmission Date: 20120608
  Serious: Yes (Hospitalization)
  Sender: FDA-Public Use
  Company Number: IT-ABBOTT-11P-083-0882905-00

PATIENT
  Sex: Male

DRUGS (2)
  1. CLARITHROMYCIN [Suspect]
     Indication: SKIN INFECTION
     Route: 048
     Dates: start: 20110708, end: 20110713
  2. CARDURA [Concomitant]
     Indication: HYPERTENSION
     Route: 048
     Dates: start: 20100701

REACTIONS (6)
  - SKIN TIGHTNESS [None]
  - PHOTOSENSITIVITY REACTION [None]
  - SKIN BURNING SENSATION [None]
  - VERTIGO [None]
  - CONFUSIONAL STATE [None]
  - ERYTHEMA [None]
